FAERS Safety Report 4566981-0 (Version None)
Quarter: 2005Q1

REPORT INFORMATION
  Report Type: 
  Country: None (occurrence: None)
  Receive Date: 20050201
  Receipt Date: 20040212
  Transmission Date: 20050727
  Serious: Yes (Other)
  Sender: FDA-Public Use
  Company Number: US-BRISTOL-MYERS SQUIBB COMPANY-12509741

PATIENT
  Age: 44 Year
  Sex: Female

DRUGS (7)
  1. STADOL [Suspect]
     Route: 045
     Dates: start: 19950101
  2. NAPROXEN [Concomitant]
  3. PROPOXYPHENE NAPSYLATE [Concomitant]
  4. ACETAMINOPHEN [Concomitant]
  5. BACLOFEN [Concomitant]
  6. CELEBREX [Concomitant]
  7. BUTALBITAL + CAFFEINE + ACETAMINOPHEN [Concomitant]

REACTIONS (2)
  - DEPENDENCE [None]
  - DRUG WITHDRAWAL SYNDROME [None]
